FAERS Safety Report 21075048 (Version 1)
Quarter: 2022Q3

REPORT INFORMATION
  Report Type: Report from Study
  Country: AU (occurrence: AU)
  Receive Date: 20220713
  Receipt Date: 20220713
  Transmission Date: 20221027
  Serious: Yes (Hospitalization, Other)
  Sender: FDA-Public Use
  Company Number: AU-BRISTOL-MYERS SQUIBB COMPANY-2022-069761

PATIENT
  Age: 86 Year
  Sex: Male
  Weight: 60 kg

DRUGS (7)
  1. NIVOLUMAB [Suspect]
     Active Substance: NIVOLUMAB
     Indication: Gastrointestinal adenocarcinoma
     Route: 042
     Dates: start: 20220614, end: 20220705
  2. IDRONOXIL [Suspect]
     Active Substance: IDRONOXIL
     Indication: Gastrointestinal adenocarcinoma
     Route: 054
     Dates: start: 20220531, end: 20220705
  3. POTASSIUM [Concomitant]
     Active Substance: POTASSIUM
     Indication: Hyperkalaemia
     Route: 048
     Dates: start: 20220414, end: 20220615
  4. MEDIPULV [Concomitant]
     Indication: Skin abrasion
     Dosage: ONE PUFF PRN
     Route: 061
     Dates: start: 20220605, end: 20220607
  5. STREPSILS [GUAIFENESIN] [Concomitant]
     Indication: Nasopharyngitis
     Dosage: ONE LOSENGE ORN
     Route: 048
     Dates: start: 20220622, end: 20220622
  6. DICLOFENAC [Concomitant]
     Active Substance: DICLOFENAC
     Indication: Musculoskeletal stiffness
     Dosage: PRN
     Route: 061
     Dates: start: 20220701
  7. DICLOFENAC [Concomitant]
     Active Substance: DICLOFENAC
     Indication: Musculoskeletal stiffness

REACTIONS (1)
  - Hepatic failure [Not Recovered/Not Resolved]

NARRATIVE: CASE EVENT DATE: 20220705
